FAERS Safety Report 6059580-5 (Version None)
Quarter: 2009Q1

REPORT INFORMATION
  Report Type: 
  Country: None (occurrence: None)
  Receive Date: 20090127
  Receipt Date: 20090127
  Transmission Date: 20090719
  Serious: No
  Sender: FDA-Public Use
  Company Number: None

PATIENT
  Age: 58 Year
  Sex: Male
  Weight: 83.9154 kg

DRUGS (1)
  1. VIAGRA [Suspect]
     Indication: ERECTILE DYSFUNCTION
     Dosage: 1/2 AS NEEDED PO
     Route: 048
     Dates: start: 20061229, end: 20080907

REACTIONS (4)
  - DEAFNESS UNILATERAL [None]
  - INNER EAR DISORDER [None]
  - TINNITUS [None]
  - VERTIGO [None]
